FAERS Safety Report 18810814 (Version 2)
Quarter: 2021Q1

REPORT INFORMATION
  Report Type: Report from Study
  Country: GT (occurrence: GT)
  Receive Date: 20210129
  Receipt Date: 20210215
  Transmission Date: 20210419
  Serious: Yes (Other)
  Sender: FDA-Public Use
  Company Number: NVSC2021GT019390

PATIENT
  Sex: Male
  Weight: 86.64 kg

DRUGS (4)
  1. EXFORGE [Suspect]
     Active Substance: AMLODIPINE BESYLATE\VALSARTAN
     Dosage: 1 DF (5/320 MG, STARTED 8 YEARS AGO, CONSUMED IT FOR SOME MONTHS), QD
     Route: 048
  2. EUTIROX [Concomitant]
     Active Substance: LEVOTHYROXINE SODIUM
     Indication: PRODUCT USED FOR UNKNOWN INDICATION
     Dosage: UNK
     Route: 065
  3. EXFORGE [Suspect]
     Active Substance: AMLODIPINE BESYLATE\VALSARTAN
     Dosage: 10 MG
     Route: 048
  4. EXFORGE [Suspect]
     Active Substance: AMLODIPINE BESYLATE\VALSARTAN
     Indication: HYPERTENSION
     Dosage: 1 DF, (5/320 MG, STARTED LIKE 5 YEARS AGO AND STOPPED 4 YEARS AND 9 MONTHS AGO)
     Route: 048

REACTIONS (3)
  - Blood pressure fluctuation [Recovered/Resolved]
  - Adrenal adenoma [Recovered/Resolved]
  - Extra dose administered [Unknown]
